FAERS Safety Report 6642702-2 (Version None)
Quarter: 2010Q1

REPORT INFORMATION
  Report Type: 
  Country: None (occurrence: None)
  Receive Date: 20100319
  Receipt Date: 20100312
  Transmission Date: 20100710
  Serious: No
  Sender: FDA-Public Use
  Company Number: DK-ASTRAZENECA-2010SE11559

PATIENT
  Age: 18615 Day
  Sex: Female
  Weight: 66 kg

DRUGS (1)
  1. SEROQUEL XR [Suspect]
     Indication: SCHIZOPHRENIA
     Route: 048
     Dates: start: 20081125, end: 20090729

REACTIONS (1)
  - LEUKOPENIA [None]
